FAERS Safety Report 7083519-7 (Version None)
Quarter: 2010Q4

REPORT INFORMATION
  Report Type: 
  Country: None (occurrence: None)
  Receive Date: 20101104
  Receipt Date: 20101025
  Transmission Date: 20110411
  Serious: Yes (Hospitalization, Other)
  Sender: FDA-Public Use
  Company Number: US-ROCHE-691879

PATIENT
  Sex: Female
  Weight: 62.6 kg

DRUGS (5)
  1. ACCUTANE [Suspect]
     Indication: ACNE
     Route: 048
     Dates: start: 19970411
  2. ACCUTANE [Suspect]
     Route: 048
     Dates: start: 19970520
  3. ACCUTANE [Suspect]
     Route: 048
     Dates: start: 19970715, end: 19970801
  4. CLARAVIS [Suspect]
     Indication: ACNE
     Route: 048
     Dates: start: 20060925, end: 20061025
  5. AMNESTEEM [Suspect]
     Indication: ACNE
     Route: 048
     Dates: start: 20061026, end: 20070309

REACTIONS (16)
  - ARTHRITIS [None]
  - CHEILITIS [None]
  - COLITIS ULCERATIVE [None]
  - CROHN'S DISEASE [None]
  - DEPRESSION [None]
  - EXTERNAL EAR CELLULITIS [None]
  - FUNGAL INFECTION [None]
  - ILEAL STENOSIS [None]
  - INFLAMMATORY BOWEL DISEASE [None]
  - INTESTINAL HAEMORRHAGE [None]
  - IRON DEFICIENCY ANAEMIA [None]
  - NASAL DRYNESS [None]
  - ORAL HERPES [None]
  - RASH PRURITIC [None]
  - SMALL INTESTINAL OBSTRUCTION [None]
  - TINEA INFECTION [None]
